FAERS Safety Report 4556778-X (Version None)
Quarter: 2005Q1

REPORT INFORMATION
  Report Type: 
  Country: None (occurrence: None)
  Receive Date: 20050103
  Receipt Date: 20040720
  Transmission Date: 20050727
  Serious: Yes (Other)
  Sender: FDA-Public Use
  Company Number: 2004UW15265

PATIENT
  Age: 75 Year
  Sex: Female
  Weight: 54.4316 kg

DRUGS (9)
  1. CRESTOR [Suspect]
     Indication: BLOOD CHOLESTEROL INCREASED
     Dosage: 10 MG PO
     Route: 048
     Dates: start: 20030701
  2. ATENOLOL [Concomitant]
  3. COZAAR [Concomitant]
  4. HYDROCHLOROTHIAZIDE [Concomitant]
  5. NEXIUM [Concomitant]
  6. ZYRTEC [Concomitant]
  7. TRUSOPT [Concomitant]
  8. TYLENOL [Concomitant]
  9. FLONASE [Concomitant]

REACTIONS (3)
  - BLOOD BILIRUBIN INCREASED [None]
  - CYSTITIS [None]
  - POLLAKIURIA [None]
